FAERS Safety Report 11174090 (Version 1)
Quarter: 2015Q2

REPORT INFORMATION
  Report Type: Spontaneous
  Country: CH (occurrence: CH)
  Receive Date: 20150609
  Receipt Date: 20150609
  Transmission Date: 20150821
  Serious: Yes (Hospitalization)
  Sender: FDA-Public Use
  Company Number: CH-PFIZER INC-2015192546

PATIENT
  Age: 80 Year
  Sex: Male

DRUGS (12)
  1. MADOPAR [Concomitant]
     Active Substance: BENSERAZIDE HYDROCHLORIDE\LEVODOPA
  2. METOLAZONE. [Concomitant]
     Active Substance: METOLAZONE
  3. PANTOZOL [Concomitant]
     Active Substance: PANTOPRAZOLE SODIUM
  4. TOREM [Concomitant]
     Active Substance: TORSEMIDE
  5. CORDARONE [Suspect]
     Active Substance: AMIODARONE HYDROCHLORIDE
     Indication: CORONARY ARTERY DISEASE
     Dosage: 200 MG, DAILY
     Route: 048
     Dates: start: 20120821, end: 20150502
  6. BELOC [Concomitant]
     Active Substance: METOPROLOL TARTRATE
  7. PARAGOL [Concomitant]
  8. LAXOBERON [Concomitant]
     Active Substance: SODIUM PICOSULFATE
  9. CALCIMAGON-D3 [Concomitant]
     Active Substance: CALCIUM\CHOLECALCIFEROL
  10. KCL [Concomitant]
     Active Substance: POTASSIUM CHLORIDE
  11. MARCOUMAR [Concomitant]
     Active Substance: PHENPROCOUMON
  12. PREDNISON [Concomitant]
     Active Substance: PREDNISONE

REACTIONS (3)
  - Pleural effusion [Unknown]
  - Pneumonitis [Recovering/Resolving]
  - Bronchiectasis [Unknown]

NARRATIVE: CASE EVENT DATE: 201504
